FAERS Safety Report 6977989-X (Version None)
Quarter: 2010Q3

REPORT INFORMATION
  Report Type: 
  Country: None (occurrence: None)
  Receive Date: 20100913
  Receipt Date: 20100830
  Transmission Date: 20110219
  Serious: Yes (Death, Other)
  Sender: FDA-Public Use
  Company Number: SE-RANBAXY-2010RR-38025

PATIENT
  Age: 32 Year
  Sex: Male

DRUGS (8)
  1. CITALOPRAM HYDROBROMIDE [Suspect]
  2. ACETAMINOPHEN [Suspect]
  3. DEXTROAMPHETAMINE AND AMPHETAMINE SALTS [Suspect]
  4. MORPHINE [Suspect]
  5. HEROIN [Suspect]
  6. COCAINE [Suspect]
  7. THC [Suspect]
  8. SODIUM OXYBATE [Suspect]

REACTIONS (3)
  - DEATH [None]
  - DRUG ABUSE [None]
  - OVERDOSE [None]
